FAERS Safety Report 16963563 (Version 3)
Quarter: 2019Q4

REPORT INFORMATION
  Report Type: Spontaneous
  Country: US (occurrence: US)
  Receive Date: 20191025
  Receipt Date: 20191218
  Transmission Date: 20200122
  Serious: Yes (Hospitalization)
  Sender: FDA-Public Use
  Company Number: US-NOVOPROD-691819

PATIENT
  Age: 53 Year
  Sex: Male

DRUGS (3)
  1. NOVOLOG [Suspect]
     Active Substance: INSULIN ASPART
     Indication: TYPE 1 DIABETES MELLITUS
     Dosage: SLIDING SCALE VIA PUMP // 2.2 UNITS PER HR (BASAL)
     Route: 058
     Dates: start: 20191010
  2. NOVOLOG [Suspect]
     Active Substance: INSULIN ASPART
     Dosage: UNK ( INJECTING ANOTHER LARGE AMOUNT OF INSULIN)
     Route: 058
  3. NOVOLOG [Suspect]
     Active Substance: INSULIN ASPART
     Dosage: SLIDING SCALE VIA PUMP // 2.2 UNITS PER HR (BASAL)
     Route: 058

REACTIONS (3)
  - Product quality issue [Unknown]
  - Incorrect dose administered [Unknown]
  - Diabetic ketoacidosis [Recovered/Resolved]

NARRATIVE: CASE EVENT DATE: 201910
